FAERS Safety Report 4828428-6 (Version None)
Quarter: 2005Q4

REPORT INFORMATION
  Report Type: 
  Country: None (occurrence: None)
  Receive Date: 20051115
  Receipt Date: 20050930
  Transmission Date: 20060501
  Serious: Yes (Disabling, Other)
  Sender: FDA-Public Use
  Company Number: US-MERCK-0510USA01874

PATIENT
  Age: 60 Year
  Sex: Male
  Weight: 109 kg

DRUGS (10)
  1. VIOXX [Suspect]
     Indication: ARTHRITIS
     Route: 048
     Dates: start: 20020506, end: 20030502
  2. ASPIRIN [Concomitant]
     Route: 065
  3. ATENOLOL MSD [Concomitant]
     Route: 065
  4. FLONASE [Concomitant]
     Route: 065
  5. GLUCOPHAGE XR [Concomitant]
     Route: 065
  6. HYDRODIURIL [Concomitant]
     Route: 065
  7. LEXAPRO [Concomitant]
     Route: 065
  8. LEXOTAN [Concomitant]
     Route: 065
  9. LIPITOR [Concomitant]
     Route: 065
  10. PLAVIX [Concomitant]
     Route: 065

REACTIONS (2)
  - CARDIAC DISORDER [None]
  - MYOCARDIAL INFARCTION [None]
